FAERS Safety Report 9361206 (Version 2)
Quarter: 2013Q4

REPORT INFORMATION
  Report Type: Spontaneous
  Country: JP (occurrence: JP)
  Receive Date: 20130621
  Receipt Date: 20131023
  Transmission Date: 20140711
  Serious: Yes (Hospitalization)
  Sender: FDA-Public Use
  Company Number: JP-BRISTOL-MYERS SQUIBB COMPANY-19029644

PATIENT
  Age: 73 Year
  Sex: Male

DRUGS (8)
  1. METGLUCO [Suspect]
     Indication: TYPE 2 DIABETES MELLITUS
     Dosage: ON 19-APR- 2012, THE DOSE OF METFORMIN HCL WAS INCREASED TO 1500 MG PER DAY
     Route: 048
     Dates: start: 20120105, end: 20130612
  2. AMARYL [Concomitant]
     Indication: DIABETES MELLITUS
     Route: 048
     Dates: start: 20080603
  3. VILDAGLIPTIN [Concomitant]
     Indication: DIABETES MELLITUS
     Route: 048
     Dates: start: 20111006
  4. MEDET [Concomitant]
     Indication: DIABETES MELLITUS
     Dosage: 22APR11-4JAN12-750MG-257D
     Route: 048
     Dates: start: 20050602, end: 20110421
  5. ALINAMIN-F [Concomitant]
     Indication: CONSTIPATION
     Route: 048
     Dates: start: 20080603
  6. MIYA-BM [Concomitant]
     Indication: CONSTIPATION
     Route: 048
     Dates: start: 20090924, end: 20130612
  7. KETOPROFEN [Concomitant]
     Dates: start: 20120124
  8. INTEBAN [Concomitant]
     Dates: start: 20120823

REACTIONS (1)
  - Rhabdomyolysis [Recovered/Resolved]
